FAERS Safety Report 5050698-2 (Version None)
Quarter: 2006Q3

REPORT INFORMATION
  Report Type: 
  Country: None (occurrence: None)
  Receive Date: 20060707
  Receipt Date: 20060629
  Transmission Date: 20061208
  Serious: Yes (Hospitalization, Other)
  Sender: FDA-Public Use
  Company Number: FRWYE180420JUN03

PATIENT
  Age: 50 Year
  Sex: Female

DRUGS (2)
  1. RAPAMUNE [Suspect]
     Indication: PROPHYLAXIS AGAINST TRANSPLANT REJECTION
     Dosage: 5 MG 1X PER 1 DAY ORAL
     Route: 048
     Dates: start: 20020818
  2. CELLCEPT [Suspect]
     Dosage: 1.5 G 1X PER 1 DAY ORAL
     Route: 048
     Dates: start: 20020818

REACTIONS (9)
  - ARTERIOVENOUS FISTULA [None]
  - COMPLICATIONS OF TRANSPLANTED KIDNEY [None]
  - DEVICE MIGRATION [None]
  - PNEUMONIA [None]
  - PULMONARY EMBOLISM [None]
  - RENAL INFARCT [None]
  - STAPHYLOCOCCAL INFECTION [None]
  - SUPERINFECTION [None]
  - VASCULAR GRAFT COMPLICATION [None]
